FAERS Safety Report 6117163-2 (Version None)
Quarter: 2009Q1

REPORT INFORMATION
  Report Type: 
  Country: None (occurrence: None)
  Receive Date: 20090314
  Receipt Date: 20090109
  Transmission Date: 20090719
  Serious: No
  Sender: FDA-Public Use
  Company Number: US-ABBOTT-09P-163-0496752-00

PATIENT
  Sex: Female
  Weight: 86.26 kg

DRUGS (3)
  1. HUMIRA [Suspect]
     Indication: CROHN'S DISEASE
     Route: 058
     Dates: start: 20080101
  2. PENTASA [Concomitant]
     Indication: CROHN'S DISEASE
     Dosage: PER CONSUMER 4 PILLS A DAY
  3. EFFEXOR [Concomitant]
     Indication: DRUG USE FOR UNKNOWN INDICATION

REACTIONS (3)
  - VAGINAL DISCHARGE [None]
  - VAGINAL INFECTION [None]
  - VULVOVAGINAL PRURITUS [None]
